FAERS Safety Report 6964672-X (Version None)
Quarter: 2010Q3

REPORT INFORMATION
  Report Type: 
  Country: None (occurrence: None)
  Receive Date: 20100903
  Receipt Date: 20100827
  Transmission Date: 20110219
  Serious: Yes (Other)
  Sender: FDA-Public Use
  Company Number: ES-PFIZER INC-2010108742

PATIENT
  Age: 33 Year
  Sex: Male

DRUGS (2)
  1. CARDYL [Suspect]
     Dosage: 20 MG, 1X/DAY
  2. CAPTOPRIL [Concomitant]
     Dosage: UNK

REACTIONS (1)
  - HYPOGLYCAEMIA [None]
